FAERS Safety Report 4285918-5 (Version None)
Quarter: 2004Q1

REPORT INFORMATION
  Report Type: 
  Country: None (occurrence: None)
  Receive Date: 20040203
  Receipt Date: 20040130
  Transmission Date: 20041129
  Serious: Yes (Death)
  Sender: FDA-Public Use
  Company Number: USA-2003-0007777

PATIENT
  Age: 35 Year
  Sex: Male

DRUGS (2)
  1. OXYCODONE HCL [Suspect]
  2. HYDROCODONE BITARTRATE [Suspect]

REACTIONS (2)
  - CONGESTIVE CARDIOMYOPATHY [None]
  - DRUG TOXICITY [None]
